FAERS Safety Report 4497654-0 (Version None)
Quarter: 2004Q4

REPORT INFORMATION
  Report Type: 
  Country: None (occurrence: None)
  Receive Date: 20041105
  Receipt Date: 20041028
  Transmission Date: 20050328
  Serious: Yes (Hospitalization)
  Sender: FDA-Public Use
  Company Number: TPA2004A00999

PATIENT
  Age: 65 Year
  Sex: Female
  Weight: 81.1939 kg

DRUGS (14)
  1. ACTOS [Suspect]
     Indication: DIABETES MELLITUS NON-INSULIN-DEPENDENT
     Dosage: 15 MG, 1 IN 1 D, PER ORAL
     Route: 048
     Dates: start: 20040814
  2. GLUCOTROL [Concomitant]
  3. DILTIAZEM [Concomitant]
  4. ALLOPURINOL [Concomitant]
  5. FERROUS SULFATE TAB [Concomitant]
  6. ACCURETIC [Concomitant]
  7. FOLIC ACID [Concomitant]
  8. GEMFIBROZIL [Concomitant]
  9. PLAVIX [Concomitant]
  10. PRILOSEC [Concomitant]
  11. CITRA OIL SOLUTION [Concomitant]
  12. ACTONEL [Concomitant]
  13. ASPIRIN [Concomitant]
  14. BICITRA (SHOL'S SOLUTION) [Concomitant]

REACTIONS (6)
  - ASTHENIA [None]
  - BLOOD GLUCOSE INCREASED [None]
  - CHEST DISCOMFORT [None]
  - CHEST PAIN [None]
  - CYSTITIS [None]
  - DEHYDRATION [None]
